FAERS Safety Report 12846164 (Version 2)
Quarter: 2016Q4

REPORT INFORMATION
  Report Type: Report from Study
  Country: FR (occurrence: FR)
  Receive Date: 20161014
  Receipt Date: 20161223
  Transmission Date: 20170207
  Serious: Yes (Hospitalization)
  Sender: FDA-Public Use
  Company Number: FR-ROCHE-1840692

PATIENT
  Age: 72 Year
  Sex: Male
  Weight: 75 kg

DRUGS (3)
  1. VEMURAFENIB [Suspect]
     Active Substance: VEMURAFENIB
     Dosage: CUMULATIVE DOSE SINCE THE FIRST ADMINISTRATION: 26880 MG
     Route: 048
     Dates: start: 20160728
  2. VEMURAFENIB [Suspect]
     Active Substance: VEMURAFENIB
     Indication: NEOPLASM MALIGNANT
     Dosage: SAE CYCLE NUMBER: 1?LAST DOSE ADMINISTERED BEFORE SAE: 960 MG?CUMULATIVE DOSE SINCE THE FIRST ADMINI
     Route: 048
     Dates: start: 20160623, end: 20160713
  3. COVERSYL [Concomitant]
     Active Substance: PERINDOPRIL

REACTIONS (5)
  - General physical health deterioration [Recovered/Resolved]
  - Hyperthermia [Recovered/Resolved]
  - Anaemia [Recovered/Resolved]
  - Vomiting [Recovered/Resolved]
  - Performance status decreased [Recovered/Resolved]

NARRATIVE: CASE EVENT DATE: 20160713
